FAERS Safety Report 22921476 (Version 2)
Quarter: 2024Q3

REPORT INFORMATION
  Report Type: Spontaneous
  Country: US (occurrence: None)
  Receive Date: 20230908
  Receipt Date: 20240906
  Transmission Date: 20241016
  Serious: No
  Sender: DOMPE FARMACEUTICI
  Company Number: US-FARMAPROD-202306-1957

PATIENT
  Age: 77 Year
  Sex: Female

DRUGS (8)
  1. OXERVATE [Suspect]
     Active Substance: CENEGERMIN-BKBJ
     Indication: Neurotrophic keratopathy
     Route: 047
     Dates: start: 20230628
  2. OXERVATE [Suspect]
     Active Substance: CENEGERMIN-BKBJ
  3. XANAX [Concomitant]
     Active Substance: ALPRAZOLAM
  4. MIRAPEX [Concomitant]
     Active Substance: PRAMIPEXOLE DIHYDROCHLORIDE
  5. METHOTREXATE [Concomitant]
     Active Substance: METHOTREXATE
  6. PREDNISOLONE [Concomitant]
     Active Substance: PREDNISOLONE
  7. REFRESH CELLUVISC [Concomitant]
     Active Substance: CARBOXYMETHYLCELLULOSE SODIUM
  8. SYSTANE HYDRATION PF PRESERVATIVE FREE [Concomitant]
     Active Substance: POLYETHYLENE GLYCOL 400\PROPYLENE GLYCOL

REACTIONS (5)
  - Product storage error [Unknown]
  - Eyelid pain [Unknown]
  - Rhinalgia [Recovering/Resolving]
  - Cough [Recovering/Resolving]
  - Dysphonia [Recovering/Resolving]

NARRATIVE: CASE EVENT DATE: 20230628
